FAERS Safety Report 5565394-2 (Version None)
Quarter: 2007Q4

REPORT INFORMATION
  Report Type: 
  Country: None (occurrence: None)
  Receive Date: 20071218
  Receipt Date: 20050805
  Transmission Date: 20080405
  Serious: Yes (Death, Hospitalization)
  Sender: FDA-Public Use
  Company Number: US-ROCHE-405791

PATIENT
  Age: 44 Year
  Sex: Male
  Weight: 85.7 kg

DRUGS (7)
  1. PEGASYS [Suspect]
     Indication: DRUG USE FOR UNKNOWN INDICATION
     Dosage: ROUTE: INJECTABLE.
     Route: 065
  2. COPEGUS [Suspect]
     Indication: DRUG USE FOR UNKNOWN INDICATION
     Route: 048
  3. ANTIBIOTIC [Concomitant]
  4. PREVACID [Concomitant]
     Route: 048
     Dates: end: 20050203
  5. CARDIZEM CD [Concomitant]
     Indication: HYPERTENSION
     Route: 048
  6. VALIUM [Concomitant]
     Indication: ANXIETY
     Route: 048
  7. ZANTAC [Concomitant]
     Dosage: STRENGTH REPORTED AS 150
     Route: 048
     Dates: start: 20050205

REACTIONS (6)
  - ANAEMIA [None]
  - LEUKOPENIA [None]
  - NAUSEA [None]
  - PYREXIA [None]
  - ROAD TRAFFIC ACCIDENT [None]
  - VOMITING [None]
